FAERS Safety Report 5036565-9 (Version None)
Quarter: 2006Q2

REPORT INFORMATION
  Report Type: 
  Country: None (occurrence: None)
  Receive Date: 20060623
  Receipt Date: 20060607
  Transmission Date: 20061013
  Serious: Yes (Other)
  Sender: FDA-Public Use
  Company Number: 2006049935

PATIENT
  Sex: Female
  Weight: 60 kg

DRUGS (12)
  1. LYRICA [Suspect]
     Indication: DIABETIC NEUROPATHY
     Dosage: 150 MG (75 MG, 2 IN 1 D), ORAL
     Route: 048
     Dates: start: 20050123, end: 20060405
  2. BISOPROLOL FUMARATE [Concomitant]
  3. TOREM (TORASEMIDE) [Concomitant]
  4. ENALAPRIL MALEATE [Concomitant]
  5. SIMVASTATIN [Concomitant]
  6. LEVOTHYROXINE SODIUM [Concomitant]
  7. PIRACETAM (PIRACETAM) [Concomitant]
  8. ALL OTHER THERAPEUTIC PRODUCTS [Concomitant]
  9. AQUO-CYOBION               (HYDROXOCOBALAMIN ACETATE) [Concomitant]
  10. ACETYLSALICYLIC ACID SRT [Concomitant]
  11. MARCUMAR [Concomitant]
  12. MOVICOL (MACROGOL, POTASSIUM CHLORIDE, SODIUM BICARBONATE, SODIUM CHLO [Concomitant]

REACTIONS (5)
  - ARRHYTHMIA [None]
  - ATRIAL FIBRILLATION [None]
  - DIZZINESS [None]
  - FALL [None]
  - HEART RATE INCREASED [None]
